FAERS Safety Report 6813351-8 (Version None)
Quarter: 2010Q3

REPORT INFORMATION
  Report Type: 
  Country: None (occurrence: None)
  Receive Date: 20100701
  Receipt Date: 20100308
  Transmission Date: 20110219
  Serious: Yes (Death, Hospitalization, Other)
  Sender: FDA-Public Use
  Company Number: US-BAXTER-2010BH001334

PATIENT
  Age: 44 Year
  Sex: Female

DRUGS (2)
  1. DIANEAL [Suspect]
     Indication: PERITONEAL DIALYSIS
     Route: 033
  2. ANTIBIOTIC [Suspect]
     Indication: PERITONITIS

REACTIONS (12)
  - ABDOMINAL DISTENSION [None]
  - BLOOD PRESSURE DECREASED [None]
  - DECREASED APPETITE [None]
  - FATIGUE [None]
  - GUILLAIN-BARRE SYNDROME [None]
  - HYPOALBUMINAEMIA [None]
  - PERITONITIS [None]
  - RESPIRATORY FAILURE [None]
  - SEPSIS [None]
  - SHOCK [None]
  - SOMNOLENCE [None]
  - STEVENS-JOHNSON SYNDROME [None]
